FAERS Safety Report 9577164 (Version 1)
Quarter: 2013Q4

REPORT INFORMATION
  Report Type: Spontaneous
  Country: US (occurrence: US)
  Receive Date: 20131001
  Receipt Date: 20131001
  Transmission Date: 20140711
  Serious: No
  Sender: FDA-Public Use
  Company Number: US-AMGEN-USASP2013006955

PATIENT
  Age: 75 Year
  Sex: Female

DRUGS (10)
  1. ENBREL [Suspect]
     Indication: PRODUCT USED FOR UNKNOWN INDICATION
     Dosage: 25 MG, 2 TIMES/WK
     Route: 058
  2. FUROSEMIDE [Concomitant]
     Dosage: 20 MG, UNK
  3. SIMVASTATIN [Concomitant]
     Dosage: 80 MG, UNK
  4. ACTONEL [Concomitant]
     Dosage: 5 MG, UNK
  5. METOPROLOL [Concomitant]
     Dosage: 200 MG, ER
  6. PREDNISOLONE [Concomitant]
     Dosage: 5 MG, UNK
  7. TOLMETIN SODIUM [Concomitant]
     Dosage: 200 MG, UNK
  8. RANITIDINE [Concomitant]
     Dosage: 15 MG, UNK
  9. FOLIC ACID [Concomitant]
     Dosage: UNK
  10. METHOTREXATE [Concomitant]
     Dosage: 25 MG, UNK

REACTIONS (2)
  - Pharyngitis [Unknown]
  - Localised infection [Unknown]
